FAERS Safety Report 7565934-8 (Version None)
Quarter: 2011Q2

REPORT INFORMATION
  Report Type: 
  Country: None (occurrence: None)
  Receive Date: 20110623
  Receipt Date: 20110610
  Transmission Date: 20111010
  Serious: Yes (Hospitalization, Other)
  Sender: FDA-Public Use
  Company Number: US-ELI_LILLY_AND_COMPANY-US201102005611

PATIENT
  Sex: Female
  Weight: 48 kg

DRUGS (18)
  1. FISH OIL [Concomitant]
  2. PROMETHAZINE [Concomitant]
     Dosage: UNK, PRN
  3. AMLODIPINE [Concomitant]
  4. DETROL [Concomitant]
  5. MECLIZINE [Concomitant]
     Dosage: UNK, PRN
  6. FORTEO [Suspect]
     Indication: OSTEOPOROSIS
     Dosage: 20 UG, DAILY (1/D)
     Route: 058
     Dates: start: 20101014, end: 20110414
  7. FORTEO [Suspect]
     Dosage: 20 UG, QD
     Dates: start: 20110417
  8. PANTOPRAZOLE [Concomitant]
  9. CENTRUM SILVER [Concomitant]
  10. ZYRTEC [Concomitant]
  11. PROTONIX [Concomitant]
  12. ASCORBIC ACID [Concomitant]
  13. LISINOPRIL [Concomitant]
  14. VITAMIN E [Concomitant]
  15. PREDNISONE [Concomitant]
  16. BIAXIN [Concomitant]
  17. ANTIVERT [Concomitant]
  18. NORVASC [Concomitant]

REACTIONS (8)
  - RENAL FAILURE ACUTE [None]
  - UPPER RESPIRATORY TRACT INFECTION [None]
  - ORAL CANDIDIASIS [None]
  - DECREASED APPETITE [None]
  - DYSPHAGIA [None]
  - DEHYDRATION [None]
  - MUSCLE SPASMS [None]
  - WEIGHT DECREASED [None]
